FAERS Safety Report 25279255 (Version 3)
Quarter: 2025Q3

REPORT INFORMATION
  Report Type: Report from Study
  Country: US (occurrence: US)
  Receive Date: 20250507
  Receipt Date: 20250930
  Transmission Date: 20251020
  Serious: Yes (Death, Hospitalization)
  Sender: TAIHO ONCOLOGY INC
  Company Number: US-TAIHOP-2025-004866

PATIENT
  Age: 85 Year
  Sex: Male

DRUGS (2)
  1. INQOVI [Suspect]
     Active Substance: CEDAZURIDINE\DECITABINE
     Indication: Myelodysplastic syndrome
     Dosage: 135 MG (DECITABINE 35MG AND CEDAZURIDINE 100 MG) ON DAYS 1-5 OF EVERY 28-DAY CYCLE.?CYCLE UNKNOWN
     Route: 048
     Dates: start: 202501
  2. LENALIDOMIDE [Concomitant]
     Active Substance: LENALIDOMIDE
     Indication: Product used for unknown indication

REACTIONS (4)
  - Disease progression [Fatal]
  - Pneumonia [Fatal]
  - Neutropenia [Fatal]
  - Anaemia [Unknown]
